FAERS Safety Report 9169256 (Version 2)
Quarter: 2014Q1

REPORT INFORMATION
  Report Type: Report from Study
  Country: US (occurrence: US)
  Receive Date: 20130318
  Receipt Date: 20140110
  Transmission Date: 20141002
  Serious: Yes (Other)
  Sender: FDA-Public Use
  Company Number: US-ROCHE-1202454

PATIENT
  Age: 56 Year
  Sex: Male

DRUGS (4)
  1. MYCOPHENOLATE MOFETIL [Suspect]
     Indication: IMMUNOSUPPRESSION
     Dosage: STARTED ON DAY -3, CONTINUED AS MAINTENANCE
     Route: 048
  2. TACROLIMUS [Suspect]
     Indication: IMMUNOSUPPRESSION
     Route: 065
  3. FLUDARABINE [Suspect]
     Indication: RENAL TRANSPLANT
     Route: 065
  4. CYCLOPHOSPHAMIDE [Suspect]
     Indication: IMMUNOSUPPRESSION
     Route: 065

REACTIONS (4)
  - Viral infection [Recovered/Resolved]
  - Bone marrow failure [Recovered/Resolved]
  - Sepsis [Unknown]
  - Kidney transplant rejection [Unknown]
